FAERS Safety Report 7289259-3 (Version None)
Quarter: 2011Q1

REPORT INFORMATION
  Report Type: 
  Country: None (occurrence: None)
  Receive Date: 20110201
  Receipt Date: 20110118
  Transmission Date: 20110831
  Serious: Yes (Hospitalization)
  Sender: FDA-Public Use
  Company Number: APP201100077

PATIENT
  Age: 26 Year
  Sex: Male

DRUGS (9)
  1. VALGANCICLOVIR HCL [Suspect]
     Indication: PRODUCT USED FOR UNKNOWN INDICATION
  2. CYCLOSPORINE [Suspect]
     Indication: PRODUCT USED FOR UNKNOWN INDICATION
  3. DEXAMETHASONE SODIUM PHOSPHATE [Suspect]
     Indication: IMMUNOSUPPRESSION
     Dosage: 1.5 MG, DAILY,
  4. MYCOPHENOLATE MOFETIL [Suspect]
     Indication: PRODUCT USED FOR UNKNOWN INDICATION
  5. TACROLIMUS [Suspect]
     Indication: PRODUCT USED FOR UNKNOWN INDICATION
  6. BASILIXIMAB (BASILIXIMAB) [Suspect]
     Indication: PRODUCT USED FOR UNKNOWN INDICATION
  7. CIPROFLOXACIN [Concomitant]
  8. FLUCONAZOLE [Concomitant]
  9. MEROPENEM [Concomitant]

REACTIONS (11)
  - OSTEOMYELITIS FUNGAL [None]
  - LEUKOENCEPHALOPATHY [None]
  - LOWER RESPIRATORY TRACT INFECTION [None]
  - PLEURAL HAEMORRHAGE [None]
  - RENAL IMPAIRMENT [None]
  - STATUS EPILEPTICUS [None]
  - HYPOGLYCAEMIA [None]
  - PNEUMONIA [None]
  - TOXICITY TO VARIOUS AGENTS [None]
  - ASPERGILLOSIS [None]
  - DIABETES MELLITUS INADEQUATE CONTROL [None]
